FAERS Safety Report 4601050-2 (Version None)
Quarter: 2005Q1

REPORT INFORMATION
  Report Type: 
  Country: None (occurrence: None)
  Receive Date: 20050307
  Receipt Date: 20050307
  Transmission Date: 20050727
  Serious: Yes (Life-Threatening)
  Sender: FDA-Public Use
  Company Number: None

PATIENT
  Age: 42 Year
  Sex: Female
  Weight: 58.9676 kg

DRUGS (1)
  1. TYSABRI [Suspect]
     Dosage: ONE    MONTHLY

REACTIONS (2)
  - HYPERSENSITIVITY [None]
  - PYREXIA [None]
